FAERS Safety Report 22393655 (Version 6)
Quarter: 2024Q1

REPORT INFORMATION
  Report Type: Spontaneous
  Country: US (occurrence: US)
  Receive Date: 20230601
  Receipt Date: 20240301
  Transmission Date: 20240410
  Serious: Yes (Hospitalization, Other)
  Sender: FDA-Public Use
  Company Number: US-PFIZER INC-202300203976

PATIENT
  Age: 60 Year
  Sex: Female
  Weight: 57.596 kg

DRUGS (6)
  1. IBRANCE [Suspect]
     Active Substance: PALBOCICLIB
     Indication: Breast cancer metastatic
     Dosage: 125 MG, CYCLIC (FOR 21 DAYS THEN OFF A WEEK AND RESTART)
     Dates: start: 20221114
  2. IBRANCE [Suspect]
     Active Substance: PALBOCICLIB
     Dosage: 100 MG (FOR 21 DAYS THEN OFF A WEEK AND RESTART)
     Dates: start: 20230130
  3. IBRANCE [Suspect]
     Active Substance: PALBOCICLIB
     Dosage: 75 MG
  4. FASLODEX [Concomitant]
     Active Substance: FULVESTRANT
     Indication: Bone cancer metastatic
     Dosage: 250MG PER 5ML CYCLIC (EVERY 28 DAYS)
     Route: 030
     Dates: start: 20221102
  5. XGEVA [Concomitant]
     Active Substance: DENOSUMAB
     Indication: Bone cancer metastatic
     Dosage: UNK
     Route: 058
     Dates: start: 20230410
  6. ZARXIO [Concomitant]
     Active Substance: FILGRASTIM-SNDZ
     Indication: Full blood count abnormal
     Dosage: UNK
     Dates: start: 20221130

REACTIONS (12)
  - White blood cell count increased [Not Recovered/Not Resolved]
  - Haemoglobin decreased [Unknown]
  - Blood potassium decreased [Unknown]
  - Blood sodium decreased [Unknown]
  - Pyrexia [Unknown]
  - Laboratory test abnormal [Recovered/Resolved]
  - Full blood count decreased [Unknown]
  - Malaise [Unknown]
  - Decreased appetite [Unknown]
  - Weight decreased [Not Recovered/Not Resolved]
  - Platelet count decreased [Unknown]
  - Neutrophil count decreased [Unknown]

NARRATIVE: CASE EVENT DATE: 20221101
